FAERS Safety Report 6157476-1 (Version None)
Quarter: 2009Q2

REPORT INFORMATION
  Report Type: 
  Country: None (occurrence: None)
  Receive Date: 20090416
  Receipt Date: 20090414
  Transmission Date: 20091009
  Serious: Yes (Other)
  Sender: FDA-Public Use
  Company Number: PHEH2009US03648

PATIENT
  Sex: Male

DRUGS (2)
  1. EXFORGE [Suspect]
     Dosage: UNK
     Dates: start: 20090314
  2. ATENOLOL [Concomitant]
     Dosage: 0.25 MG, UNK

REACTIONS (1)
  - PETECHIAE [None]
